FAERS Safety Report 15673543 (Version 1)
Quarter: 2018Q4

REPORT INFORMATION
  Report Type: Spontaneous
  Country: US (occurrence: US)
  Receive Date: 20181129
  Receipt Date: 20181129
  Transmission Date: 20190205
  Serious: Yes (Other)
  Sender: FDA-Public Use
  Company Number: US-PFIZER INC-2018480423

PATIENT
  Age: 71 Year
  Sex: Female
  Weight: 63.5 kg

DRUGS (2)
  1. ALPRAZOLAM. [Suspect]
     Active Substance: ALPRAZOLAM
     Indication: ANXIETY
     Dosage: 0.5 MG, 3X/DAY (AT MEALTIMES AND AT BEDTIME)
     Route: 048
     Dates: start: 2000
  2. FLUOXETINE [Concomitant]
     Active Substance: FLUOXETINE HYDROCHLORIDE
     Indication: DEPRESSION
     Dosage: 20 MG, DAILY

REACTIONS (4)
  - Drug ineffective [Unknown]
  - Drug dependence [Unknown]
  - Poor quality product administered [Unknown]
  - Product colour issue [Unknown]

NARRATIVE: CASE EVENT DATE: 201810
